FAERS Safety Report 4668610-4 (Version None)
Quarter: 2005Q2

REPORT INFORMATION
  Report Type: 
  Country: None (occurrence: None)
  Receive Date: 20050523
  Receipt Date: 20041103
  Transmission Date: 20051028
  Serious: Yes (Hospitalization, Other)
  Sender: FDA-Public Use
  Company Number: PHNU2004DE03728

PATIENT
  Sex: Female
  Weight: 58 kg

DRUGS (6)
  1. CHEMOTHERAPEUTICS,OTHER [Concomitant]
     Indication: BREAST CANCER METASTATIC
     Route: 065
  2. DIGITOXIN TAB [Concomitant]
     Route: 065
  3. MICARDIS [Concomitant]
     Route: 048
  4. BISOPROLOL FUMARATE [Concomitant]
     Route: 048
  5. NORVASC [Concomitant]
     Route: 048
  6. ZOMETA [Suspect]
     Indication: BREAST CANCER METASTATIC
     Dosage: UNK, UNK

REACTIONS (6)
  - JAW DISORDER [None]
  - OSTEOMYELITIS [None]
  - OSTEONECROSIS [None]
  - PERIODONTITIS [None]
  - PYOGENIC GRANULOMA [None]
  - TOOTH EXTRACTION [None]
